FAERS Safety Report 5472969-8 (Version None)
Quarter: 2007Q4

REPORT INFORMATION
  Report Type: 
  Country: None (occurrence: None)
  Receive Date: 20071001
  Receipt Date: 20070129
  Transmission Date: 20080405
  Serious: Yes (Hospitalization, Other)
  Sender: FDA-Public Use
  Company Number: US-ASTRAZENECA-2007UW01822

PATIENT
  Age: 68 Year
  Sex: Female
  Weight: 75.3 kg

DRUGS (2)
  1. ARIMIDEX [Suspect]
     Indication: BREAST CANCER FEMALE
     Route: 048
     Dates: start: 20030101
  2. COUMADIN [Concomitant]

REACTIONS (2)
  - FOOT FRACTURE [None]
  - THROMBOSIS [None]
